FAERS Safety Report 24110967 (Version 1)
Quarter: 2024Q3

REPORT INFORMATION
  Report Type: Spontaneous
  Country: US (occurrence: US)
  Receive Date: 20240718
  Receipt Date: 20240718
  Transmission Date: 20241016
  Serious: No
  Sender: SANOFI AVENTIS
  Company Number: US-SANOFI-02136710

PATIENT
  Age: 85 Year
  Sex: Female

DRUGS (2)
  1. LANTUS SOLOSTAR [Suspect]
     Active Substance: INSULIN GLARGINE
     Indication: Diabetes mellitus
     Dosage: 19 IU, HS
     Route: 065
  2. LANTUS SOLOSTAR [Suspect]
     Active Substance: INSULIN GLARGINE
     Dosage: 15 IU, HS
     Route: 065

REACTIONS (2)
  - Rotator cuff syndrome [Unknown]
  - Blood glucose decreased [Unknown]
